FAERS Safety Report 8117781-6 (Version None)
Quarter: 2011Q4

REPORT INFORMATION
  Report Type: 
  Country: None (occurrence: None)
  Receive Date: 20111227
  Receipt Date: 20111026
  Transmission Date: 20120403
  Serious: No
  Sender: FDA-Public Use
  Company Number: PHEH2011US07756

PATIENT
  Age: 55 Year
  Sex: Female

DRUGS (8)
  1. GABAPENTIN [Concomitant]
  2. TRAMADIN (TRAMADOL HYDROCHLORIDE) [Concomitant]
  3. ACETAMINOPHEN [Concomitant]
  4. SERTRALINE HYDROCHLORIDE [Concomitant]
  5. GILENYA [Suspect]
     Indication: MULTIPLE SCLEROSIS
     Dosage: 0.5 MG, DAILY, ORAL
     Route: 048
     Dates: start: 20110101
  6. BENICAR [Concomitant]
  7. OXYCODONE HCL [Concomitant]
  8. DIAZEPAM [Concomitant]

REACTIONS (7)
  - DIPLOPIA [None]
  - DYSPNOEA [None]
  - BLEPHAROSPASM [None]
  - ALOPECIA [None]
  - BACK PAIN [None]
  - URTICARIA [None]
  - VISUAL IMPAIRMENT [None]
